FAERS Safety Report 14553896 (Version 1)
Quarter: 2018Q1

REPORT INFORMATION
  Report Type: Spontaneous
  Country: US (occurrence: US)
  Receive Date: 20180220
  Receipt Date: 20180220
  Transmission Date: 20180509
  Serious: No
  Sender: FDA-Public Use
  Company Number: PHEH2018US005737

PATIENT
  Sex: Male

DRUGS (1)
  1. LANSOPRAZOLE. [Suspect]
     Active Substance: LANSOPRAZOLE
     Indication: PRODUCT USED FOR UNKNOWN INDICATION
     Dosage: 30 MG, QD (15 MG IN THE MORNING AND 15 MG AT NIGHT)
     Route: 065

REACTIONS (3)
  - Decreased appetite [Unknown]
  - Insomnia [Unknown]
  - Abnormal behaviour [Unknown]
